FAERS Safety Report 7886738-2 (Version None)
Quarter: 2011Q4

REPORT INFORMATION
  Report Type: 
  Country: None (occurrence: None)
  Receive Date: 20111102
  Receipt Date: 20110709
  Transmission Date: 20120403
  Serious: No
  Sender: FDA-Public Use
  Company Number: US-AMGEN-USASP2011035017

PATIENT
  Age: 59 Year
  Sex: Female

DRUGS (7)
  1. PROMETRIUM [Concomitant]
     Dosage: 100 MG, UNK
  2. NIACIN [Concomitant]
     Dosage: 125 MG, UNK
  3. METHOTREXATE [Concomitant]
     Dosage: 2.5 MG, UNK
  4. FISH OIL [Concomitant]
  5. ENBREL [Suspect]
     Indication: RHEUMATOID ARTHRITIS
     Dosage: 50 MG, QWK
     Dates: start: 20110524, end: 20110705
  6. ESTRATEST [Concomitant]
  7. GARLIC                             /01570501/ [Concomitant]
     Dosage: 3 MG, UNK

REACTIONS (4)
  - INJECTION SITE URTICARIA [None]
  - INJECTION SITE SWELLING [None]
  - INJECTION SITE ERYTHEMA [None]
  - INJECTION SITE PRURITUS [None]
